FAERS Safety Report 21637695 (Version 1)
Quarter: 2022Q4

REPORT INFORMATION
  Report Type: Spontaneous
  Country: FR (occurrence: FR)
  Receive Date: 20221124
  Receipt Date: 20221124
  Transmission Date: 20230112
  Serious: Yes (Hospitalization)
  Sender: FDA-Public Use
  Company Number: FR-STRIDES ARCOLAB LIMITED-2022SP015695

PATIENT

DRUGS (1)
  1. MYCOPHENOLATE MOFETIL [Suspect]
     Active Substance: MYCOPHENOLATE MOFETIL
     Indication: Systemic lupus erythematosus
     Dosage: UNK, TREATMENT UNMODIFIED
     Route: 065

REACTIONS (5)
  - Lung disorder [Unknown]
  - Cytomegalovirus infection [Unknown]
  - Clostridium difficile colitis [Unknown]
  - Bronchopulmonary aspergillosis [Unknown]
  - Drug ineffective for unapproved indication [Unknown]
